FAERS Safety Report 23500010 (Version 3)
Quarter: 2024Q1

REPORT INFORMATION
  Report Type: Spontaneous
  Country: CZ (occurrence: CZ)
  Receive Date: 20240208
  Receipt Date: 20240314
  Transmission Date: 20240410
  Serious: Yes (Other)
  Sender: FDA-Public Use
  Company Number: CZ-TEVA-VS-3150903

PATIENT
  Sex: Female

DRUGS (5)
  1. VORICONAZOLE [Interacting]
     Active Substance: VORICONAZOLE
     Indication: Bronchopulmonary aspergillosis
     Route: 065
  2. VORICONAZOLE [Interacting]
     Active Substance: VORICONAZOLE
     Indication: Bronchopulmonary aspergillosis
     Route: 065
  3. MEROPENEM [Interacting]
     Active Substance: MEROPENEM
     Indication: Bronchopulmonary aspergillosis
     Route: 065
  4. LINEZOLID [Interacting]
     Active Substance: LINEZOLID
     Indication: Bronchopulmonary aspergillosis
     Route: 065
  5. AVIBACTAM SODIUM\CEFTAZIDIME [Interacting]
     Active Substance: AVIBACTAM SODIUM\CEFTAZIDIME
     Indication: Bronchopulmonary aspergillosis
     Route: 065

REACTIONS (2)
  - Drug interaction [Unknown]
  - Drug ineffective [Unknown]
